FAERS Safety Report 11998325 (Version 1)
Quarter: 2016Q1

REPORT INFORMATION
  Report Type: Spontaneous
  Country: US (occurrence: None)
  Receive Date: 20160203
  Receipt Date: 20160203
  Transmission Date: 20160526
  Serious: No
  Sender: FDA-Public Use
  Company Number: None

PATIENT
  Age: 49 Year
  Sex: Female
  Weight: 68.04 kg

DRUGS (7)
  1. TANZEUM [Suspect]
     Active Substance: ALBIGLUTIDE
     Indication: DIABETES MELLITUS
     Dosage: 30 MG 1 PEN/INJECTION 1X WEEK INJECTION IN STOMACH
     Dates: start: 20160109, end: 20160116
  2. METFORMIN HCL [Concomitant]
     Active Substance: METFORMIN HYDROCHLORIDE
  3. CRESTOR [Concomitant]
     Active Substance: ROSUVASTATIN CALCIUM
  4. ZYRTEC [Concomitant]
     Active Substance: CETIRIZINE HYDROCHLORIDE
  5. JANUVIA [Concomitant]
     Active Substance: SITAGLIPTIN PHOSPHATE
  6. MENTELUKAST SOD [Concomitant]
  7. GLIPIZIDE XL [Concomitant]
     Active Substance: GLIPIZIDE

REACTIONS (7)
  - Hypogeusia [None]
  - Decreased appetite [None]
  - Hypoaesthesia [None]
  - Nausea [None]
  - Palatal disorder [None]
  - Hypoaesthesia oral [None]
  - Vomiting [None]

NARRATIVE: CASE EVENT DATE: 20160109
